FAERS Safety Report 10500763 (Version 1)
Quarter: 2014Q4

REPORT INFORMATION
  Report Type: Report from Study
  Country: CA (occurrence: CA)
  Receive Date: 20141007
  Receipt Date: 20141007
  Transmission Date: 20150528
  Serious: Yes (Hospitalization)
  Sender: FDA-Public Use
  Company Number: CA-AMGEN-CANSL2014075881

PATIENT
  Age: 63 Year
  Sex: Female

DRUGS (1)
  1. NEUPOGEN [Suspect]
     Active Substance: FILGRASTIM
     Indication: PRODUCT USED FOR UNKNOWN INDICATION
     Dosage: 1ML/300 MCG, 8 VIALS
     Route: 065
     Dates: start: 20140915

REACTIONS (7)
  - Antiphospholipid syndrome [Recovering/Resolving]
  - Ischaemia [Recovering/Resolving]
  - Atrial fibrillation [Recovering/Resolving]
  - Abdominal pain [Recovering/Resolving]
  - Vomiting [Recovering/Resolving]
  - Mobility decreased [Recovering/Resolving]
  - Sepsis [Recovering/Resolving]
